FAERS Safety Report 9272489 (Version 1)
Quarter: 2013Q2

REPORT INFORMATION
  Report Type: Spontaneous
  Country: US (occurrence: US)
  Receive Date: 20130506
  Receipt Date: 20130506
  Transmission Date: 20140414
  Serious: Yes (Other)
  Sender: FDA-Public Use
  Company Number: US-GLAXOSMITHKLINE-A1022258A

PATIENT
  Age: 21 Year
  Sex: Male
  Weight: 77.3 kg

DRUGS (12)
  1. WELLBUTRIN [Suspect]
     Indication: DEPRESSION
     Route: 065
  2. EFFEXOR [Suspect]
     Indication: PRODUCT USED FOR UNKNOWN INDICATION
  3. CELEXA [Suspect]
     Indication: DEPRESSION
  4. GEODON [Suspect]
     Indication: PRODUCT USED FOR UNKNOWN INDICATION
  5. UNKNOWN MEDICATION [Suspect]
     Indication: PRODUCT USED FOR UNKNOWN INDICATION
  6. ZOLOFT [Suspect]
     Indication: DEPRESSION
     Dosage: 300MG PER DAY
     Route: 048
  7. KLONOPIN [Concomitant]
  8. PROZAC [Concomitant]
     Indication: DEPRESSION
  9. CYMBALTA [Concomitant]
     Indication: DEPRESSION
  10. PAXIL [Concomitant]
     Indication: DEPRESSION
  11. ZYPREXA [Concomitant]
  12. ABILIFY [Concomitant]

REACTIONS (5)
  - Akinesia [Recovered/Resolved]
  - Paradoxical drug reaction [Recovered/Resolved]
  - Platelet count increased [Unknown]
  - Platelet count decreased [Unknown]
  - Drug ineffective [Unknown]
